FAERS Safety Report 13012699 (Version 1)
Quarter: 2016Q4

REPORT INFORMATION
  Report Type: Spontaneous
  Country: US (occurrence: US)
  Receive Date: 20161208
  Receipt Date: 20161208
  Transmission Date: 20170207
  Serious: Yes (Hospitalization, Other)
  Sender: FDA-Public Use
  Company Number: None

PATIENT
  Age: 87 Year
  Sex: Male
  Weight: 65.77 kg

DRUGS (5)
  1. JEVITY [Concomitant]
     Active Substance: DIETARY SUPPLEMENT
  2. CIPROFLOXACIN HCL 500MG TAB GENERIC FOR CIPRO FC OBLONG WHITE WW 928 [Suspect]
     Active Substance: CIPROFLOXACIN HYDROCHLORIDE
     Indication: ANTIBIOTIC THERAPY
     Dosage: 1 PILL TWICE A DAY TWICE A DAY AS A DRIP IN THE HOSPITAL AT HOME BY MOUTH
     Route: 048
     Dates: start: 20161029, end: 20161031
  3. VITAMIN D [Concomitant]
     Active Substance: CHOLECALCIFEROL
  4. VITAMIN D PLUS OMEGA 3 [Concomitant]
  5. AMLODIPINE BESYLATE. [Concomitant]
     Active Substance: AMLODIPINE BESYLATE

REACTIONS (7)
  - Erythema [None]
  - Dehydration [None]
  - Pain in extremity [None]
  - Epistaxis [None]
  - Device breakage [None]
  - Weight decreased [None]
  - Peripheral swelling [None]

NARRATIVE: CASE EVENT DATE: 20161029
